FAERS Safety Report 16961449 (Version 2)
Quarter: 2019Q4

REPORT INFORMATION
  Report Type: Spontaneous
  Country: CA (occurrence: CA)
  Receive Date: 20191025
  Receipt Date: 20191119
  Transmission Date: 20200122
  Serious: Yes (Other)
  Sender: FDA-Public Use
  Company Number: CA-PFIZER INC-2019458517

PATIENT
  Age: 62 Year
  Sex: Female

DRUGS (10)
  1. CANDESARTAN. [Concomitant]
     Active Substance: CANDESARTAN
     Dosage: UNK
     Route: 065
  2. METHOTREXATE SODIUM. [Suspect]
     Active Substance: METHOTREXATE SODIUM
     Dosage: 15 MG, WEEKLY
     Route: 048
  3. MIDAZOLAM [Concomitant]
     Active Substance: MIDAZOLAM HYDROCHLORIDE
     Indication: ANAESTHESIA
     Dosage: 3 MG, UNK
     Route: 065
     Dates: start: 20190319, end: 20190319
  4. FENTANYL. [Concomitant]
     Active Substance: FENTANYL
     Indication: ANAESTHESIA
     Dosage: 50 UG, UNK
     Route: 065
     Dates: start: 20190319, end: 20190319
  5. VITAMIN D [VITAMIN D NOS] [Concomitant]
     Active Substance: VITAMIN D NOS
     Dosage: UNK
     Route: 065
  6. ATENOLOL. [Concomitant]
     Active Substance: ATENOLOL
     Dosage: UNK
     Route: 065
  7. REMICADE [Concomitant]
     Active Substance: INFLIXIMAB
     Dosage: 600 MG, (10 MG/KG) EVERY 4 WEEKS
     Route: 042
     Dates: end: 20191107
  8. FOLIC ACID. [Concomitant]
     Active Substance: FOLIC ACID
     Dosage: UNK
     Route: 065
  9. ALENDRONATE [Concomitant]
     Active Substance: ALENDRONATE SODIUM
     Dosage: UNK
     Route: 065
  10. HYDROXYCHLOROQUINE [Concomitant]
     Active Substance: HYDROXYCHLOROQUINE
     Dosage: UNK
     Route: 065

REACTIONS (8)
  - Loss of personal independence in daily activities [Unknown]
  - Faecal calprotectin increased [Unknown]
  - Haematochezia [Unknown]
  - Arthralgia [Unknown]
  - Rectal tenesmus [Unknown]
  - Rectal haemorrhage [Unknown]
  - Pseudopolyp [Unknown]
  - Defaecation urgency [Unknown]

NARRATIVE: CASE EVENT DATE: 201805
